FAERS Safety Report 8114572-7 (Version None)
Quarter: 2012Q1

REPORT INFORMATION
  Report Type: 
  Country: None (occurrence: None)
  Receive Date: 20120206
  Receipt Date: 20120130
  Transmission Date: 20120608
  Serious: No
  Sender: FDA-Public Use
  Company Number: US-PFIZER INC-2012026045

PATIENT
  Age: 48 Year
  Sex: Female
  Weight: 119.1 kg

DRUGS (5)
  1. REVATIO [Suspect]
     Dosage: UNK
  2. AMBRISENTAN [Suspect]
     Indication: PULMONARY ARTERIAL HYPERTENSION
     Dosage: UNK
     Route: 048
  3. TYVASO [Suspect]
     Dosage: UNK
  4. OXYGEN [Suspect]
     Dosage: UNK
  5. COUMADIN [Suspect]
     Dosage: UNK

REACTIONS (1)
  - EPISTAXIS [None]
